FAERS Safety Report 9667888 (Version 1)
Quarter: 2013Q4

REPORT INFORMATION
  Report Type: Spontaneous
  Country: US (occurrence: US)
  Receive Date: 20131104
  Receipt Date: 20131104
  Transmission Date: 20140711
  Serious: Yes (Other)
  Sender: FDA-Public Use
  Company Number: US-B.I. PHARMACEUTICALS,INC./RIDGEFIELD-2013-BI-34881GD

PATIENT
  Age: 23 Year
  Sex: Female

DRUGS (3)
  1. COMBIVENT [Suspect]
     Indication: ASTHMA
     Route: 055
  2. MONTELUKAST [Suspect]
     Indication: ASTHMA
  3. FLUTICASONE W/SALMETEROL [Suspect]
     Indication: ASTHMA
     Route: 055

REACTIONS (1)
  - Drug ineffective [Unknown]
